FAERS Safety Report 14172855 (Version 1)
Quarter: 2017Q4

REPORT INFORMATION
  Report Type: Spontaneous
  Country: US (occurrence: None)
  Receive Date: 20171108
  Receipt Date: 20171108
  Transmission Date: 20180321
  Serious: No
  Sender: FDA-Public Use
  Company Number: None

PATIENT
  Sex: Female

DRUGS (1)
  1. HUMIRA [Suspect]
     Active Substance: ADALIMUMAB
     Indication: PSORIATIC ARTHROPATHY
     Route: 058
     Dates: start: 20170925

REACTIONS (7)
  - Muscle rigidity [None]
  - Depression [None]
  - Paranoia [None]
  - Tremor [None]
  - Corneal transplant [None]
  - Hallucination [None]
  - Insomnia [None]
